FAERS Safety Report 4611978-5 (Version None)
Quarter: 2005Q2

REPORT INFORMATION
  Report Type: 
  Country: None (occurrence: None)
  Receive Date: 20050308
  Receipt Date: 20050114
  Transmission Date: 20051028
  Serious: Yes (Other)
  Sender: FDA-Public Use
  Company Number: 2005UW00757

PATIENT
  Age: 40 Year
  Sex: Male
  Weight: 136.07 kg

DRUGS (5)
  1. CRESTOR [Suspect]
     Indication: BLOOD CHOLESTEROL INCREASED
     Dosage: 10 MG DAILY PO
     Route: 048
     Dates: start: 20041101
  2. CLONIDINE [Concomitant]
  3. TOPROL-XL [Concomitant]
  4. AVAPRO [Concomitant]
  5. ZOLOFT [Concomitant]

REACTIONS (3)
  - CONTUSION [None]
  - INJURY [None]
  - OEDEMA PERIPHERAL [None]
